FAERS Safety Report 23228344 (Version 1)
Quarter: 2023Q4

REPORT INFORMATION
  Report Type: Spontaneous
  Country: DE (occurrence: DE)
  Receive Date: 20231125
  Receipt Date: 20231125
  Transmission Date: 20240110
  Serious: Yes (Other)
  Sender: FDA-Public Use
  Company Number: DE-SANDOZ-SDZ2023DE022776

PATIENT
  Age: 67 Year
  Sex: Male

DRUGS (1)
  1. RISPERIDONE [Suspect]
     Active Substance: RISPERIDONE
     Indication: Mental disorder
     Dosage: 3 DOSAGE FORM, DAILY (1 DF, TID)
     Route: 065
     Dates: start: 202304

REACTIONS (4)
  - Blood pressure increased [Unknown]
  - Arthropathy [Unknown]
  - Neck pain [Unknown]
  - Muscle disorder [Unknown]
